FAERS Safety Report 4691182-5 (Version None)
Quarter: 2005Q2

REPORT INFORMATION
  Report Type: 
  Country: None (occurrence: None)
  Receive Date: 20050615
  Receipt Date: 20041112
  Transmission Date: 20051028
  Serious: Yes (Death, Hospitalization, Other)
  Sender: FDA-Public Use
  Company Number: US-AMGEN-KDL099458

PATIENT
  Sex: Male

DRUGS (3)
  1. PROCRIT [Suspect]
     Indication: ANAEMIA OF MALIGNANT DISEASE
     Dates: start: 20040901
  2. FLUDARABINE PHOSPHATE [Concomitant]
     Dates: end: 20040901
  3. PREDNISONE TAB [Concomitant]
     Dates: start: 20040901

REACTIONS (4)
  - ACUTE RESPIRATORY DISTRESS SYNDROME [None]
  - MULTI-ORGAN FAILURE [None]
  - NEUROPATHY PERIPHERAL [None]
  - PNEUMONIA [None]
